FAERS Safety Report 14799739 (Version 1)
Quarter: 2018Q2

REPORT INFORMATION
  Report Type: Spontaneous
  Country: IN (occurrence: IN)
  Receive Date: 20180424
  Receipt Date: 20180424
  Transmission Date: 20180711
  Serious: Yes (Other)
  Sender: FDA-Public Use
  Company Number: IN-PENTEC HEALTH-2018PEN00015

PATIENT
  Sex: Female

DRUGS (2)
  1. MAGNESIUM SULFATE. [Suspect]
     Active Substance: MAGNESIUM SULFATE
     Dosage: 6 G, ONCE; 3 G (50% SOLUTION) IM IN EACH BUTTOCK
     Route: 030
  2. MAGNESIUM SULFATE. [Suspect]
     Active Substance: MAGNESIUM SULFATE
     Indication: PRE-ECLAMPSIA
     Dosage: 4 G, ONCE; 20% SOLUTION, OVER 10-15 MINUTES
     Route: 042

REACTIONS (3)
  - Toxicity to various agents [Unknown]
  - Exposure during pregnancy [Unknown]
  - Respiratory depression [Unknown]
